FAERS Safety Report 18196323 (Version 6)
Quarter: 2020Q4

REPORT INFORMATION
  Report Type: Spontaneous
  Country: US (occurrence: US)
  Receive Date: 20200826
  Receipt Date: 20201130
  Transmission Date: 20210113
  Serious: Yes (Other)
  Sender: FDA-Public Use
  Company Number: US-AUROBINDO-AUR-APL-2020-024620

PATIENT
  Age: 43 Year
  Sex: Female
  Weight: 77.09 kg

DRUGS (5)
  1. MODAFINIL TABLETS USP 100MG [Suspect]
     Active Substance: MODAFINIL
     Dosage: UNK
     Route: 065
     Dates: start: 2006, end: 2016
  2. MODAFINIL TABLETS USP 100MG [Suspect]
     Active Substance: MODAFINIL
     Indication: SLEEP DISORDER
     Dosage: 1 DOSAGE FORM, DAILY
     Route: 048
     Dates: start: 2005, end: 2013
  3. MODAFINIL TABLETS USP 100MG [Suspect]
     Active Substance: MODAFINIL
     Dosage: UNK (REFILLED ON MAR-2020 AND 02-JUN-2020)
     Route: 065
     Dates: start: 20200201
  4. MODAFINIL TABLETS USP 100MG [Suspect]
     Active Substance: MODAFINIL
     Dosage: UNK (DOUBLING THE DOSE)
     Route: 065
     Dates: end: 20200702
  5. MODAFINIL TABLETS USP 100MG [Suspect]
     Active Substance: MODAFINIL
     Indication: HYPERSOMNIA
     Dosage: UNK
     Route: 065
     Dates: start: 2006

REACTIONS (9)
  - Dysphonia [Recovered/Resolved]
  - Dizziness [Recovered/Resolved]
  - Drug ineffective [Unknown]
  - Gait disturbance [Recovered/Resolved]
  - Vertigo [Recovered/Resolved]
  - Dysarthria [Recovered/Resolved]
  - Poor quality sleep [Recovered/Resolved]
  - Pain [Recovered/Resolved]
  - Fatigue [Recovered/Resolved]
